FAERS Safety Report 21143236 (Version 2)
Quarter: 2022Q3

REPORT INFORMATION
  Report Type: Spontaneous
  Country: NL (occurrence: NL)
  Receive Date: 20220728
  Receipt Date: 20220810
  Transmission Date: 20221027
  Serious: Yes (Hospitalization, Other)
  Sender: FDA-Public Use
  Company Number: NL-TEVA-2022-NL-2057737

PATIENT
  Age: 42 Year
  Sex: Male

DRUGS (5)
  1. CISPLATIN [Suspect]
     Active Substance: CISPLATIN
     Indication: Germ cell cancer metastatic
     Dosage: 2H INFUSION ON DAYS 1-5 FOR SIX CYCLES
     Route: 050
  2. ETOPOSIDE [Suspect]
     Active Substance: ETOPOSIDE
     Indication: Germ cell cancer metastatic
     Dosage: 1H INFUSION ON DAYS 1-5 FOR SIX CYCLES
     Route: 050
  3. SODIUM CHLORIDE [Concomitant]
     Active Substance: SODIUM CHLORIDE
     Indication: Drug therapy
     Dosage: 1000 ML 0.9% SODIUM CHLORIDE CONTAINING 2 MMOL/L POTASSIUM CHLORIDE AND 8.14 MMOL/L MAGNESIUM SUL...
     Route: 065
  4. POTASSIUM CHLORIDE [Concomitant]
     Active Substance: POTASSIUM CHLORIDE
     Indication: Drug therapy
     Dosage: 1000 ML 0.9% SODIUM CHLORIDE CONTAINING 2 MMOL/L POTASSIUM CHLORIDE AND 8.14 MMOL/L MAGNESIUM SUL...
     Route: 065
  5. MAGNESIUM SULFATE [Concomitant]
     Active Substance: MAGNESIUM SULFATE
     Indication: Drug therapy
     Dosage: 1000 ML 0.9% SODIUM CHLORIDE CONTAINING 2 MMOL/L POTASSIUM CHLORIDE AND 8.14 MMOL/L MAGNESIUM SUL...
     Route: 065

REACTIONS (9)
  - Nausea [Recovered/Resolved]
  - Diarrhoea [Recovered/Resolved]
  - Vomiting [Recovered/Resolved]
  - Asthenia [Recovered/Resolved]
  - Fatigue [Recovered/Resolved]
  - Neutropenia [Recovered/Resolved]
  - Anaemia [Recovered/Resolved]
  - Peripheral sensory neuropathy [Recovered/Resolved]
  - Pneumonia [Recovered/Resolved]
